FAERS Safety Report 25308121 (Version 2)
Quarter: 2025Q2

REPORT INFORMATION
  Report Type: Report from Study
  Country: US (occurrence: US)
  Receive Date: 20250513
  Receipt Date: 20250514
  Transmission Date: 20250717
  Serious: No
  Sender: PFIZER
  Company Number: US-PFIZER INC-202500081167

PATIENT
  Age: 68 Year
  Sex: Female

DRUGS (13)
  1. IBRANCE [Suspect]
     Active Substance: PALBOCICLIB
     Indication: Breast cancer female
     Dates: start: 20250121
  2. GLIPIZIDE [Concomitant]
     Active Substance: GLIPIZIDE
  3. HYDROCHLOROTHIAZIDE [Concomitant]
     Active Substance: HYDROCHLOROTHIAZIDE
  4. METFORMIN [Concomitant]
     Active Substance: METFORMIN HYDROCHLORIDE
  5. CALCIUM [Concomitant]
     Active Substance: CALCIUM
  6. PIOGLITAZONE [Concomitant]
     Active Substance: PIOGLITAZONE
  7. VITAMIN D3 [Concomitant]
     Active Substance: CHOLECALCIFEROL
  8. ZOLEDRONIC ACID [Concomitant]
     Active Substance: ZOLEDRONIC ACID
  9. HEPARIN SODIUM [Concomitant]
     Active Substance: HEPARIN SODIUM
  10. SODIUM CHLORIDE [Concomitant]
     Active Substance: SODIUM CHLORIDE
     Route: 042
  11. FULVESTRANT [Concomitant]
     Active Substance: FULVESTRANT
  12. LISINOPRIL [Concomitant]
     Active Substance: LISINOPRIL
  13. PRAVASTATIN [Concomitant]
     Active Substance: PRAVASTATIN

REACTIONS (2)
  - Gingivitis [Recovering/Resolving]
  - Gingival disorder [Recovering/Resolving]
